FAERS Safety Report 8110981-0 (Version None)
Quarter: 2012Q1

REPORT INFORMATION
  Report Type: 
  Country: None (occurrence: None)
  Receive Date: 20120203
  Receipt Date: 20110124
  Transmission Date: 20120608
  Serious: No
  Sender: FDA-Public Use
  Company Number: US-GLAXOSMITHKLINE-A0908623A

PATIENT
  Age: 54 Year
  Sex: Female

DRUGS (8)
  1. CRESTOR [Concomitant]
  2. GABAPENTIN [Concomitant]
  3. ATENOLOL [Concomitant]
  4. ISOSORBIDE DINITRATE [Concomitant]
  5. HYDROCODONE BITARTRATE AND ACETAMINOPHEN [Concomitant]
  6. FLUOXETINE [Concomitant]
  7. METFORMIN HCL [Concomitant]
  8. LAMICTAL [Suspect]
     Indication: BIPOLAR DISORDER
     Dosage: 200MG TWICE PER DAY
     Route: 048
     Dates: start: 20101001, end: 20110124

REACTIONS (7)
  - EYE SWELLING [None]
  - RASH PUSTULAR [None]
  - BLISTER [None]
  - RASH [None]
  - SKIN IRRITATION [None]
  - URTICARIA [None]
  - DRY SKIN [None]
